FAERS Safety Report 5116979-9 (Version None)
Quarter: 2006Q3

REPORT INFORMATION
  Report Type: 
  Country: None (occurrence: None)
  Receive Date: 20060922
  Receipt Date: 20060918
  Transmission Date: 20061208
  Serious: Yes (Hospitalization, Disabling)
  Sender: FDA-Public Use
  Company Number: AUWYE26715SEP06

PATIENT
  Age: 70 Year
  Sex: Female

DRUGS (5)
  1. PREMARIN [Suspect]
     Indication: HORMONE REPLACEMENT THERAPY
     Dosage: 0.625 MG 1X PER 1 DAY
     Route: 048
     Dates: start: 20060719, end: 20060807
  2. PREMARIN [Suspect]
     Indication: HORMONE REPLACEMENT THERAPY
     Dosage: 0.625 MG 1X PER 1 DAY
     Route: 048
  3. AVAPRO [Concomitant]
  4. PRAVACHOL [Concomitant]
  5. OMEPRAZOLE MAGNESIUM [Concomitant]

REACTIONS (7)
  - BLINDNESS TRANSIENT [None]
  - BLINDNESS UNILATERAL [None]
  - DRUG WITHDRAWAL SYNDROME [None]
  - EYE PAIN [None]
  - HEADACHE [None]
  - SWELLING FACE [None]
  - URTICARIA [None]
